FAERS Safety Report 6940974-8 (Version None)
Quarter: 2010Q3

REPORT INFORMATION
  Report Type: 
  Country: None (occurrence: None)
  Receive Date: 20100825
  Receipt Date: 20100817
  Transmission Date: 20110219
  Serious: Yes (Death, Hospitalization)
  Sender: FDA-Public Use
  Company Number: A0876365A

PATIENT
  Age: 50 Year
  Sex: Female

DRUGS (2)
  1. ARIXTRA [Suspect]
     Indication: PRODUCT USED FOR UNKNOWN INDICATION
     Route: 065
     Dates: start: 20090101
  2. UNKNOWN [Concomitant]

REACTIONS (5)
  - DEATH [None]
  - FALL [None]
  - OEDEMA PERIPHERAL [None]
  - SKIN LACERATION [None]
  - STAPHYLOCOCCAL INFECTION [None]
